FAERS Safety Report 11110468 (Version 2)
Quarter: 2015Q3

REPORT INFORMATION
  Report Type: Spontaneous
  Country: US (occurrence: US)
  Receive Date: 20150513
  Receipt Date: 20150828
  Transmission Date: 20151125
  Serious: No
  Sender: FDA-Public Use
  Company Number: US-009507513-1505USA001633

PATIENT
  Age: 60 Year
  Sex: Male
  Weight: 80.27 kg

DRUGS (12)
  1. MAXALT [Suspect]
     Active Substance: RIZATRIPTAN BENZOATE
     Indication: MIGRAINE
     Dosage: 5 MG DAILY AS NEEDED / MAY REPEAT IN 2 HOURS IF NEEDED (UP TO 20PILLS/MONTH)
     Route: 048
     Dates: start: 2011
  2. NIASPAN [Concomitant]
     Active Substance: NIACIN
     Dosage: 2000 MG BY MOUTH DAILY
     Route: 048
  3. FOLIC ACID (+) IRON (UNSPECIFIED) [Concomitant]
     Dosage: CHEW
     Route: 048
  4. NORVASC [Concomitant]
     Active Substance: AMLODIPINE BESYLATE
  5. JANUVIA [Concomitant]
     Active Substance: SITAGLIPTIN PHOSPHATE
     Dosage: 100 MG, UNK
     Route: 048
  6. GLUCOTROL [Concomitant]
     Active Substance: GLIPIZIDE
     Dosage: 5 MG, UNK
     Route: 048
  7. TRAZODONE HYDROCHLORIDE. [Concomitant]
     Active Substance: TRAZODONE HYDROCHLORIDE
     Indication: SLEEP DISORDER
  8. RESTASIS [Concomitant]
     Active Substance: CYCLOSPORINE
     Dosage: 1 DROP TO BOTH EYES DAILY
  9. FERROUS FUMARATE [Concomitant]
     Active Substance: FERROUS FUMARATE
     Dosage: 27 MG, DAILY
     Route: 048
  10. MAXALT [Suspect]
     Active Substance: RIZATRIPTAN BENZOATE
     Indication: HEADACHE
  11. CORGARD [Concomitant]
     Active Substance: NADOLOL
     Indication: BLOOD PRESSURE MEASUREMENT
     Dosage: 10 MG, UNK
     Route: 048
  12. CHOLECALCIFEROL [Concomitant]
     Active Substance: CHOLECALCIFEROL
     Dosage: 4000 UNITS DAILY
     Route: 048

REACTIONS (36)
  - International normalised ratio increased [Recovering/Resolving]
  - Blood creatinine increased [Recovering/Resolving]
  - Aspartate aminotransferase increased [Unknown]
  - Bilirubin conjugated increased [Unknown]
  - Hepatitis A antibody positive [Unknown]
  - Hepatitis B surface antibody positive [Unknown]
  - Red blood cell count decreased [Unknown]
  - Headache [Recovering/Resolving]
  - Liver function test abnormal [Recovering/Resolving]
  - Haemoglobin decreased [Unknown]
  - Platelet count decreased [Recovering/Resolving]
  - Blood alkaline phosphatase increased [Unknown]
  - Blood immunoglobulin A increased [Unknown]
  - Protein total decreased [Unknown]
  - Fatigue [Recovering/Resolving]
  - Alanine aminotransferase increased [Unknown]
  - Red cell distribution width increased [Unknown]
  - White blood cell count decreased [Recovered/Resolved]
  - Nephrolithiasis [Unknown]
  - Incorrect dose administered [Unknown]
  - Biliary tract disorder [Recovering/Resolving]
  - Blood albumin decreased [Unknown]
  - Blood bilirubin increased [Recovered/Resolved]
  - Glomerular filtration rate decreased [Unknown]
  - Drug administration error [Unknown]
  - Transferrin decreased [Unknown]
  - Iron binding capacity total decreased [Unknown]
  - Nocturia [Recovering/Resolving]
  - Haematocrit decreased [Recovering/Resolving]
  - Prothrombin time prolonged [Unknown]
  - Overdose [Unknown]
  - Blood creatine increased [Unknown]
  - Ceruloplasmin decreased [Unknown]
  - Large intestine polyp [Unknown]
  - Neutrophil count decreased [Unknown]
  - Urinary casts [Unknown]

NARRATIVE: CASE EVENT DATE: 2014
